FAERS Safety Report 5562356-6 (Version None)
Quarter: 2007Q4

REPORT INFORMATION
  Report Type: 
  Country: None (occurrence: None)
  Receive Date: 20071215
  Receipt Date: 20070727
  Transmission Date: 20080405
  Serious: No
  Sender: FDA-Public Use
  Company Number: US-AMGEN-US236378

PATIENT
  Sex: Female

DRUGS (1)
  1. ENBREL [Suspect]
     Indication: PSORIASIS
     Route: 058
     Dates: start: 20040903

REACTIONS (7)
  - BREAST MASS [None]
  - DERMATITIS CONTACT [None]
  - FIBROCYSTIC BREAST DISEASE [None]
  - INJECTION SITE BRUISING [None]
  - INJECTION SITE PAIN [None]
  - PSORIASIS [None]
  - SKIN INFECTION [None]
